FAERS Safety Report 5854904-3 (Version None)
Quarter: 2008Q3

REPORT INFORMATION
  Report Type: 
  Country: None (occurrence: None)
  Receive Date: 20080822
  Receipt Date: 20080514
  Transmission Date: 20090109
  Serious: Yes (Hospitalization)
  Sender: FDA-Public Use
  Company Number: US-ABBOTT-08P-163-0441263-00

PATIENT
  Sex: Female
  Weight: 78.088 kg

DRUGS (22)
  1. SYNTHROID [Suspect]
     Indication: HYPOTHYROIDISM
     Route: 048
     Dates: start: 19970101, end: 19970601
  2. ASOPTIN [Suspect]
     Indication: DRUG USE FOR UNKNOWN INDICATION
  3. METFORMIN [Suspect]
     Indication: DRUG USE FOR UNKNOWN INDICATION
  4. PROPRANOLOL [Suspect]
     Indication: DRUG USE FOR UNKNOWN INDICATION
  5. INSULIN LISPRO [Concomitant]
     Indication: DIABETES MELLITUS
     Route: 058
  6. LANTUS [Concomitant]
     Indication: DIABETES MELLITUS
     Route: 058
  7. ESTRADIOL INJ [Concomitant]
     Indication: HYSTERECTOMY
  8. FLUTICASONE PROPIONATE [Concomitant]
     Indication: HYPERSENSITIVITY
     Route: 055
  9. IRBESARTAN [Concomitant]
     Indication: PROPHYLAXIS
     Route: 048
  10. IRBESARTAN [Concomitant]
     Indication: DIABETES MELLITUS
  11. IRBESARTAN [Concomitant]
     Indication: EYE DISORDER
  12. IRBESARTAN [Concomitant]
     Indication: RENAL DISORDER
  13. DOCUSATE SODIUM [Concomitant]
     Indication: CONSTIPATION PROPHYLAXIS
     Route: 048
  14. WELLBUTRIN SR [Concomitant]
     Indication: MENTAL DISORDER
     Route: 048
  15. ACETYLSALICYLIC ACID SRT [Concomitant]
     Indication: CORONARY ARTERIAL STENT INSERTION
     Route: 048
  16. METOPROLOL SUCCINATE [Concomitant]
     Indication: ARRHYTHMIA
     Route: 048
  17. FUROSEMIDE [Concomitant]
     Indication: CARDIAC DISORDER
     Route: 048
  18. SIMVASTATIN [Concomitant]
     Indication: BLOOD CHOLESTEROL INCREASED
     Route: 048
  19. CLOPIDOGREL [Concomitant]
     Indication: CARDIAC DISORDER
     Route: 048
  20. ISOPTIN SR [Concomitant]
     Indication: MIGRAINE
     Route: 048
  21. HMR VITAMIN [Concomitant]
     Indication: VITAMIN SUPPLEMENTATION
     Route: 048
  22. ACETAMINOPHEN [Concomitant]
     Indication: PAIN
     Route: 048

REACTIONS (4)
  - MYOCARDIAL INFARCTION [None]
  - PRURITUS [None]
  - RASH [None]
  - SCAB [None]
